FAERS Safety Report 21086304 (Version 2)
Quarter: 2022Q3

REPORT INFORMATION
  Report Type: Report from Study
  Country: ZA (occurrence: ZA)
  Receive Date: 20220715
  Receipt Date: 20220826
  Transmission Date: 20221027
  Serious: Yes (Hospitalization, Other)
  Sender: FDA-Public Use
  Company Number: ZA-NOVOPROD-929186

PATIENT
  Age: 75 Year
  Sex: Female

DRUGS (4)
  1. GLUCOPHAGE [Concomitant]
     Active Substance: METFORMIN HYDROCHLORIDE
     Indication: Type 2 diabetes mellitus
     Dosage: UNK
     Route: 048
  2. RYZODEG 70/30 [Suspect]
     Active Substance: INSULIN ASPART\INSULIN DEGLUDEC
     Indication: Type 2 diabetes mellitus
     Dosage: 20 IU, BID
     Dates: start: 20220531
  3. RYZODEG 70/30 [Suspect]
     Active Substance: INSULIN ASPART\INSULIN DEGLUDEC
     Dosage: 48 IU, QD(BD 26 + SD 22)
  4. RYZODEG 70/30 [Suspect]
     Active Substance: INSULIN ASPART\INSULIN DEGLUDEC
     Dosage: 22 IU, BID(BD + SD)

REACTIONS (6)
  - Cough [Not Recovered/Not Resolved]
  - COVID-19 [Not Recovered/Not Resolved]
  - Hyperglycaemia [Recovered/Resolved]
  - Increased insulin requirement [Recovered/Resolved]
  - Drug ineffective [Recovered/Resolved]
  - Headache [Not Recovered/Not Resolved]
